FAERS Safety Report 16942720 (Version 3)
Quarter: 2020Q1

REPORT INFORMATION
  Report Type: Spontaneous
  Country: US (occurrence: US)
  Receive Date: 20191021
  Receipt Date: 20200317
  Transmission Date: 20200409
  Serious: Yes (Other)
  Sender: FDA-Public Use
  Company Number: US-009507513-1910USA010965

PATIENT
  Age: 74 Year
  Sex: Female

DRUGS (3)
  1. PROVENTIL [Suspect]
     Active Substance: ALBUTEROL
     Indication: ASTHMA
     Dosage: 3 TO 4 INHALATIONS DAILY
     Route: 055
  2. PROVENTIL [Suspect]
     Active Substance: ALBUTEROL
     Dosage: 3 TO 4 INHALATIONS DAILY
     Route: 055
     Dates: start: 201910
  3. PROVENTIL [Suspect]
     Active Substance: ALBUTEROL
     Dosage: 3 TO 4 INHALATIONS DAILY
     Route: 055

REACTIONS (4)
  - Incorrect dose administered by device [Unknown]
  - Product quality issue [Unknown]
  - Left ventricular failure [Not Recovered/Not Resolved]
  - Poor quality device used [Unknown]

NARRATIVE: CASE EVENT DATE: 201907
